FAERS Safety Report 16583074 (Version 3)
Quarter: 2019Q3

REPORT INFORMATION
  Report Type: Spontaneous
  Country: JP (occurrence: JP)
  Receive Date: 20190717
  Receipt Date: 20190924
  Transmission Date: 20191004
  Serious: No
  Sender: FDA-Public Use
  Company Number: JP-BEH-2019104467

PATIENT
  Age: 44 Year
  Sex: Female
  Weight: 66.9 kg

DRUGS (1)
  1. HIZENTRA [Suspect]
     Active Substance: HUMAN IMMUNOGLOBULIN G
     Indication: CHRONIC INFLAMMATORY DEMYELINATING POLYRADICULONEUROPATHY
     Dosage: 16 GRAM, QW
     Route: 058
     Dates: start: 20190702

REACTIONS (2)
  - Administration site paraesthesia [Recovered/Resolved]
  - Administration site erythema [Recovered/Resolved]

NARRATIVE: CASE EVENT DATE: 20190702
